FAERS Safety Report 9674604 (Version 2)
Quarter: 2013Q4

REPORT INFORMATION
  Report Type: Spontaneous
  Country: GB (occurrence: GB)
  Receive Date: 20131107
  Receipt Date: 20131206
  Transmission Date: 20140711
  Serious: Yes (Other)
  Sender: FDA-Public Use
  Company Number: GB-DRREDDYS-GER/UKI/13/0035355

PATIENT
  Age: 27 Year
  Sex: Female
  Weight: 72 kg

DRUGS (3)
  1. ATORVASTATIN [Suspect]
     Indication: HYPERCHOLESTEROLAEMIA
     Dates: start: 201204, end: 20130331
  2. VENLAFAXINE HYDROCHLORIDE [Suspect]
     Indication: BORDERLINE PERSONALITY DISORDER
     Dates: start: 2009, end: 20131021
  3. VENLAFAXINE HYDROCHLORIDE [Suspect]
     Indication: DEPRESSION
     Dates: start: 20131022

REACTIONS (2)
  - Abortion spontaneous [Unknown]
  - Exposure during pregnancy [Unknown]
